FAERS Safety Report 7553371-1 (Version None)
Quarter: 2011Q2

REPORT INFORMATION
  Report Type: 
  Country: None (occurrence: None)
  Receive Date: 20110617
  Receipt Date: 20110321
  Transmission Date: 20111010
  Serious: No
  Sender: FDA-Public Use
  Company Number: A0919232A

PATIENT
  Age: 52 Year
  Sex: Female

DRUGS (6)
  1. SEROQUEL XR [Concomitant]
  2. PROMACTA [Suspect]
     Indication: IDIOPATHIC THROMBOCYTOPENIC PURPURA
     Dosage: 50MG PER DAY
     Route: 048
     Dates: start: 20110307
  3. HYDROCODONE [Concomitant]
  4. CELEBREX [Concomitant]
  5. CYMBALTA [Concomitant]
  6. NEXIUM [Concomitant]

REACTIONS (1)
  - DRUG INEFFECTIVE [None]
